FAERS Safety Report 8030519-6 (Version None)
Quarter: 2012Q1

REPORT INFORMATION
  Report Type: 
  Country: None (occurrence: None)
  Receive Date: 20120109
  Receipt Date: 20120104
  Transmission Date: 20120608
  Serious: Yes (Disabling)
  Sender: FDA-Public Use
  Company Number: MX-ROCHE-1001934

PATIENT
  Sex: Male
  Weight: 81 kg

DRUGS (2)
  1. COPEGUS [Suspect]
     Indication: HEPATITIS C
     Route: 048
     Dates: start: 20110809
  2. PEGINTERFERON ALFA-2A [Suspect]
     Indication: HEPATITIS C
     Route: 058
     Dates: start: 20110813

REACTIONS (12)
  - VISION BLURRED [None]
  - LIBIDO DECREASED [None]
  - TREMOR [None]
  - ERECTILE DYSFUNCTION [None]
  - ASTHENIA [None]
  - RASH [None]
  - PRURITUS [None]
  - DRY SKIN [None]
  - MYALGIA [None]
  - ARTHRALGIA [None]
  - DISTURBANCE IN ATTENTION [None]
  - DIZZINESS [None]
